FAERS Safety Report 9866664 (Version 2)
Quarter: 2014Q1

REPORT INFORMATION
  Report Type: Report from Study
  Country: US (occurrence: US)
  Receive Date: 20140204
  Receipt Date: 20140204
  Transmission Date: 20141002
  Serious: Yes (Other)
  Sender: FDA-Public Use
  Company Number: US-ROCHE-1307486

PATIENT
  Age: 6 Year
  Sex: Female
  Weight: 38.19 kg

DRUGS (8)
  1. NUTROPIN AQ [Suspect]
     Indication: GROWTH HORMONE DEFICIENCY
     Route: 058
     Dates: start: 201302, end: 20130523
  2. NUTROPIN AQ [Suspect]
     Route: 058
     Dates: start: 20130523
  3. NUTROPIN AQ [Suspect]
     Dosage: DAILY
     Route: 058
  4. CORTEF [Concomitant]
     Dosage: 7.5 GM IN AM, 2.5 MG IN AFTERNOON, 2.5 MG HS
     Route: 048
  5. LEVOTHYROXINE [Concomitant]
     Route: 048
  6. ALLEGRA [Concomitant]
     Route: 048
  7. SOLU-CORTEF [Concomitant]
     Dosage: PRN
     Route: 030
  8. EMLA CREAM [Concomitant]
     Dosage: 1 APPLICATION
     Route: 061

REACTIONS (5)
  - Epiphyses delayed fusion [Unknown]
  - Thyroxine decreased [Unknown]
  - Insulin-like growth factor increased [Unknown]
  - Fatigue [Unknown]
  - Weight increased [Unknown]
